FAERS Safety Report 9778833 (Version 1)
Quarter: 2013Q4

REPORT INFORMATION
  Report Type: Spontaneous
  Country: BR (occurrence: BR)
  Receive Date: 20131223
  Receipt Date: 20131223
  Transmission Date: 20140711
  Serious: Yes (Other)
  Sender: FDA-Public Use
  Company Number: BR-JNJFOC-20131211929

PATIENT
  Age: 34 Year
  Sex: Female
  Weight: 101 kg

DRUGS (3)
  1. REMICADE [Suspect]
     Indication: CROHN^S DISEASE
     Route: 042
  2. REMICADE [Suspect]
     Indication: CROHN^S DISEASE
     Route: 042
     Dates: start: 20130121
  3. AZATHIOPRINE [Concomitant]
     Indication: CROHN^S DISEASE
     Route: 065
     Dates: start: 2012

REACTIONS (4)
  - Female genital tract fistula [Unknown]
  - Urinary tract infection [Recovered/Resolved]
  - Secretion discharge [Not Recovered/Not Resolved]
  - Off label use [Unknown]
